FAERS Safety Report 23747100 (Version 1)
Quarter: 2024Q2

REPORT INFORMATION
  Report Type: Spontaneous
  Country: PH (occurrence: None)
  Receive Date: 20240415
  Receipt Date: 20240415
  Transmission Date: 20240716
  Serious: Yes (Other)
  Sender: FDA-Public Use
  Company Number: None

PATIENT
  Age: 19 Year
  Sex: Female
  Weight: 55 kg

DRUGS (2)
  1. SALONPAS PAIN RELIEF [Suspect]
     Active Substance: MENTHOL\METHYL SALICYLATE
     Indication: Back pain
     Dosage: 10 PATCHES EVERY 8 HOURS TRANSDERMAL?
     Route: 062
     Dates: start: 20240315, end: 20240316
  2. SALONPAS PAIN RELIEF [Suspect]
     Active Substance: MENTHOL\METHYL SALICYLATE
     Indication: Neck pain

REACTIONS (5)
  - Application site pain [None]
  - Application site pruritus [None]
  - Application site irritation [None]
  - Application site discolouration [None]
  - Application site pain [None]

NARRATIVE: CASE EVENT DATE: 20240315
